FAERS Safety Report 6594027-1 (Version None)
Quarter: 2010Q1

REPORT INFORMATION
  Report Type: 
  Country: None (occurrence: None)
  Receive Date: 20100222
  Receipt Date: 20100219
  Transmission Date: 20100710
  Serious: Yes (Hospitalization)
  Sender: FDA-Public Use
  Company Number: SK-WYE-H12822710

PATIENT
  Sex: Male
  Weight: 64.6 kg

DRUGS (8)
  1. TEMSIROLIMUS [Suspect]
     Indication: METASTATIC RENAL CELL CARCINOMA
     Route: 042
     Dates: start: 20091212, end: 20091230
  2. MONOSAN [Concomitant]
     Indication: HYPERTENSION
     Dosage: 40 MG 2X1
     Route: 048
     Dates: start: 19990101
  3. HYDROCORTISONE [Suspect]
     Dosage: UNKNOWN
     Dates: start: 20081029, end: 20091227
  4. SIMCOR [Concomitant]
     Indication: DYSLIPIDAEMIA
     Dosage: 20 MG 1X1
     Route: 048
     Dates: start: 19990101
  5. VITACALCIN [Suspect]
     Indication: OSTEOPENIA
     Dosage: 80 MG 2X1
     Route: 048
     Dates: start: 20081023
  6. LOKREN [Concomitant]
     Indication: HYPERTENSION
     Dosage: 20 MG 1X1
     Route: 048
     Dates: start: 19990101, end: 20100122
  7. BEVACIZUMAB [Suspect]
     Indication: METASTATIC RENAL CELL CARCINOMA
     Route: 042
     Dates: start: 20091212, end: 20091230
  8. ANAPYRIN [Concomitant]

REACTIONS (3)
  - CARDIAC FAILURE [None]
  - HYPONATRAEMIA [None]
  - PNEUMONITIS [None]
